FAERS Safety Report 10565225 (Version 2)
Quarter: 2014Q4

REPORT INFORMATION
  Report Type: Spontaneous
  Country: DE (occurrence: None)
  Receive Date: 20141103
  Receipt Date: 20141113
  Transmission Date: 20150529
  Serious: Yes (Hospitalization)
  Sender: FDA-Public Use
  Company Number: NGX_02574_2014

PATIENT
  Sex: Male
  Weight: 67 kg

DRUGS (2)
  1. QUTENZA [Suspect]
     Active Substance: CAPSAICIN
     Indication: COMPLEX REGIONAL PAIN SYNDROME
     Dosage: [CUTANEOUS PATCH]
     Route: 062
     Dates: start: 20140911, end: 20140922
  2. QUTENZA [Suspect]
     Active Substance: CAPSAICIN
     Dosage: [CUTANEOUS PATCH]
     Route: 062
     Dates: start: 20140911, end: 20140922

REACTIONS (3)
  - Application site erythema [None]
  - Application site swelling [None]
  - Application site pain [None]

NARRATIVE: CASE EVENT DATE: 20140911
